FAERS Safety Report 22272164 (Version 1)
Quarter: 2023Q2

REPORT INFORMATION
  Report Type: Spontaneous
  Country: PR (occurrence: PR)
  Receive Date: 20230502
  Receipt Date: 20230502
  Transmission Date: 20230721
  Serious: No
  Sender: FDA-Public Use
  Company Number: PR-BIOGEN-2023BI01202530

PATIENT
  Age: 50 Year
  Sex: Female
  Weight: 53.572 kg

DRUGS (1)
  1. TYSABRI [Suspect]
     Active Substance: NATALIZUMAB
     Indication: Multiple sclerosis
     Route: 050
     Dates: start: 20230412

REACTIONS (2)
  - Sensory disturbance [Not Recovered/Not Resolved]
  - Eyelid ptosis [Unknown]

NARRATIVE: CASE EVENT DATE: 20230401
